FAERS Safety Report 5591366-8 (Version None)
Quarter: 2008Q1

REPORT INFORMATION
  Report Type: 
  Country: None (occurrence: None)
  Receive Date: 20080111
  Receipt Date: 20080111
  Transmission Date: 20080703
  Serious: Yes (Other)
  Sender: FDA-Public Use
  Company Number: None

PATIENT
  Sex: Female
  Weight: 49.8957 kg

DRUGS (2)
  1. CHANTIX [Suspect]
     Indication: CARDIAC DISORDER
     Dosage: 1MG  TWO TIMES A DAY  PO
     Route: 048
     Dates: start: 20070306, end: 20070406
  2. CHANTIX [Suspect]
     Indication: CHRONIC OBSTRUCTIVE PULMONARY DISEASE
     Dosage: 1MG  TWO TIMES A DAY  PO
     Route: 048
     Dates: start: 20070306, end: 20070406

REACTIONS (3)
  - AGGRESSION [None]
  - MENTAL DISORDER [None]
  - SUICIDAL IDEATION [None]
